FAERS Safety Report 8554166-2 (Version None)
Quarter: 2012Q3

REPORT INFORMATION
  Report Type: 
  Country: None (occurrence: None)
  Receive Date: 20120731
  Receipt Date: 20120716
  Transmission Date: 20120928
  Serious: No
  Sender: FDA-Public Use
  Company Number: US-ASTRAZENECA-2011SE44638

PATIENT
  Age: 69 Year
  Sex: Female

DRUGS (1)
  1. PULMICORT FLEXHALER [Suspect]
     Route: 055

REACTIONS (4)
  - DYSPNOEA [None]
  - DRUG DOSE OMISSION [None]
  - CHEST DISCOMFORT [None]
  - PANIC ATTACK [None]
